FAERS Safety Report 17614816 (Version 1)
Quarter: 2020Q2

REPORT INFORMATION
  Report Type: Spontaneous
  Country: US (occurrence: US)
  Receive Date: 20200402
  Receipt Date: 20200402
  Transmission Date: 20200713
  Serious: No
  Sender: FDA-Public Use
  Company Number: US-BAYER-2020-049561

PATIENT
  Age: 7 Year
  Sex: Male

DRUGS (2)
  1. NEXAVAR [Suspect]
     Active Substance: SORAFENIB
     Indication: DESMOID TUMOUR
     Dosage: 200 MG /M2
     Route: 048
  2. CELECOXIB. [Concomitant]
     Active Substance: CELECOXIB
     Indication: DESMOID TUMOUR
     Dosage: 100 MG, BID
     Route: 048

REACTIONS (3)
  - Product administered to patient of inappropriate age [None]
  - Off label use [None]
  - Product use in unapproved indication [None]
